FAERS Safety Report 26031896 (Version 1)
Quarter: 2025Q4

REPORT INFORMATION
  Report Type: Report from Study
  Country: CO (occurrence: CO)
  Receive Date: 20251112
  Receipt Date: 20251112
  Transmission Date: 20260118
  Serious: Yes (Other)
  Sender: ROCHE
  Company Number: CO-ROCHE-3458263

PATIENT
  Age: 70 Year
  Sex: Male
  Weight: 73.5 kg

DRUGS (21)
  1. ATEZOLIZUMAB [Suspect]
     Active Substance: ATEZOLIZUMAB
     Indication: Hepatocellular carcinoma
     Route: 042
     Dates: start: 20230428
  2. ATEZOLIZUMAB [Suspect]
     Active Substance: ATEZOLIZUMAB
     Route: 042
     Dates: start: 20240307
  3. BEVACIZUMAB [Suspect]
     Active Substance: BEVACIZUMAB
     Indication: Hepatocellular carcinoma
     Route: 065
     Dates: start: 20230428
  4. BEVACIZUMAB [Suspect]
     Active Substance: BEVACIZUMAB
     Route: 065
     Dates: start: 20240307
  5. CARVEDILOL [Concomitant]
     Active Substance: CARVEDILOL
     Indication: Haemorrhage prophylaxis
     Dates: start: 202307
  6. CARVEDILOL [Concomitant]
     Active Substance: CARVEDILOL
     Indication: Varices oesophageal
  7. LACTULOSE [Concomitant]
     Active Substance: LACTULOSE
     Dates: start: 202209
  8. HYDROCHLOROTHIAZIDE [Concomitant]
     Active Substance: HYDROCHLOROTHIAZIDE
     Dates: start: 202212
  9. LANSOPRAZOLE [Concomitant]
     Active Substance: LANSOPRAZOLE
     Indication: Gastrointestinal disorder prophylaxis
     Dates: start: 20230328, end: 20240401
  10. ACETAMINOPHEN [Concomitant]
     Active Substance: ACETAMINOPHEN
     Indication: Cancer pain
     Dates: start: 202302
  11. ACETAMINOPHEN [Concomitant]
     Active Substance: ACETAMINOPHEN
     Dates: start: 20230506
  12. SPIRONOLACTONE [Concomitant]
     Active Substance: SPIRONOLACTONE
     Dates: start: 202307, end: 20231212
  13. SPIRONOLACTONE [Concomitant]
     Active Substance: SPIRONOLACTONE
     Dates: start: 20231213
  14. FUROSEMIDE [Concomitant]
     Active Substance: FUROSEMIDE
     Dates: start: 202307
  15. ENALAPRIL [Concomitant]
     Active Substance: ENALAPRIL
     Dates: start: 202212, end: 202307
  16. METOPROLOL [Concomitant]
     Active Substance: METOPROLOL
     Dates: start: 202212, end: 202307
  17. ONDANSETRON [Concomitant]
     Active Substance: ONDANSETRON
     Dates: start: 20230707, end: 20230707
  18. OMEPRAZOLE [Concomitant]
     Active Substance: OMEPRAZOLE
     Dates: start: 202303
  19. CARVEDILOL [Concomitant]
     Active Substance: CARVEDILOL
     Dates: start: 202307, end: 20250714
  20. TRAMADOL [Concomitant]
     Active Substance: TRAMADOL
     Dates: start: 20241112
  21. BISOPROLOL [Concomitant]
     Active Substance: BISOPROLOL
     Dates: start: 20250715

REACTIONS (2)
  - Transaminases increased [Recovered/Resolved]
  - Hypothyroidism [Recovering/Resolving]

NARRATIVE: CASE EVENT DATE: 20230727
